FAERS Safety Report 12522922 (Version 2)
Quarter: 2016Q3

REPORT INFORMATION
  Report Type: Spontaneous
  Country: US (occurrence: US)
  Receive Date: 20160701
  Receipt Date: 20160812
  Transmission Date: 20161109
  Serious: Yes (Hospitalization, Disabling, Other)
  Sender: FDA-Public Use
  Company Number: US-SAOL THERAPEUTICS-2016SAO00003

PATIENT
  Age: 56 Year
  Sex: Female

DRUGS (6)
  1. UNSPECIFIED ORAL MEDICATION [Concomitant]
     Active Substance: UNSPECIFIED INGREDIENT
     Dosage: UNK
     Route: 048
  2. CLONIDINE. [Suspect]
     Active Substance: CLONIDINE
     Dosage: 230 ?G, 1X/DAY
     Route: 037
     Dates: end: 20151112
  3. PROMETHAZINE [Concomitant]
     Active Substance: PROMETHAZINE\PROMETHAZINE HYDROCHLORIDE
  4. BACLOFEN. [Suspect]
     Active Substance: BACLOFEN
     Indication: PAIN
     Dosage: 230 ?G, 1X/DAY
     Route: 037
     Dates: end: 20151112
  5. FENTANYL. [Suspect]
     Active Substance: FENTANYL
     Route: 062
  6. MORPHINE [Suspect]
     Active Substance: MORPHINE
     Dosage: 17.2 MG, 1X/DAY
     Route: 037
     Dates: end: 20151112

REACTIONS (12)
  - Device malfunction [Recovered/Resolved]
  - Malaise [Unknown]
  - Urine analysis abnormal [Unknown]
  - Therapeutic response decreased [Unknown]
  - Back pain [Unknown]
  - Muscle tightness [Unknown]
  - Fall [Unknown]
  - Activities of daily living impaired [Not Recovered/Not Resolved]
  - Weight decreased [Unknown]
  - Pain [Not Recovered/Not Resolved]
  - Drug withdrawal syndrome [Unknown]
  - Vomiting [Unknown]

NARRATIVE: CASE EVENT DATE: 20151104
